FAERS Safety Report 4848071-2 (Version None)
Quarter: 2005Q4

REPORT INFORMATION
  Report Type: 
  Country: None (occurrence: None)
  Receive Date: 20051205
  Receipt Date: 20051205
  Transmission Date: 20060501
  Serious: No
  Sender: FDA-Public Use
  Company Number: None

PATIENT
  Age: 49 Year
  Sex: Female
  Weight: 68.0396 kg

DRUGS (3)
  1. LYMPHAZURIN [Suspect]
     Indication: MALIGNANT MELANOMA
     Dosage: ABOUT 1 ML   1 INJECTION ONLY   ID
     Route: 023
     Dates: start: 20050916, end: 20050916
  2. LYMPHAZURIN [Suspect]
     Indication: SCAN LYMPH NODES
     Dosage: ABOUT 1 ML   1 INJECTION ONLY   ID
     Route: 023
     Dates: start: 20050916, end: 20050916
  3. TECHNETIUM COLLOID -FILTERED- [Concomitant]

REACTIONS (2)
  - OFF LABEL USE [None]
  - SKIN DISCOLOURATION [None]
